FAERS Safety Report 21877572 (Version 1)
Quarter: 2023Q1

REPORT INFORMATION
  Report Type: Spontaneous
  Country: US (occurrence: US)
  Receive Date: 20230118
  Receipt Date: 20230118
  Transmission Date: 20230417
  Serious: No
  Sender: FDA-Public Use
  Company Number: US-SA-SAC20230116000716

PATIENT
  Sex: Female

DRUGS (1)
  1. DUPIXENT [Suspect]
     Active Substance: DUPILUMAB
     Indication: Product used for unknown indication
     Dosage: DOSE: 300MG FREQUENCY: OTHER
     Route: 058

REACTIONS (8)
  - Asthma [Unknown]
  - Dacryostenosis acquired [Unknown]
  - Photophobia [Unknown]
  - Illness [Unknown]
  - Eczema [Unknown]
  - Therapeutic response shortened [Unknown]
  - Lacrimation increased [Unknown]
  - Intentional product misuse [Unknown]
